FAERS Safety Report 10793884 (Version 1)
Quarter: 2015Q1

REPORT INFORMATION
  Report Type: Spontaneous
  Country: CN (occurrence: CN)
  Receive Date: 20150213
  Receipt Date: 20150213
  Transmission Date: 20150721
  Serious: Yes (Other)
  Sender: FDA-Public Use
  Company Number: CN-BAYER-2015-021606

PATIENT
  Sex: Male

DRUGS (2)
  1. BAYASPIRIN [Suspect]
     Active Substance: ASPIRIN
     Dosage: 0.5 DF, QD
  2. BAYASPIRIN [Suspect]
     Active Substance: ASPIRIN
     Dosage: 1 DF, UNK
     Dates: start: 2011

REACTIONS (2)
  - Haemorrhagic anaemia [None]
  - Epistaxis [None]

NARRATIVE: CASE EVENT DATE: 201501
